FAERS Safety Report 20449470 (Version 1)
Quarter: 2022Q1

REPORT INFORMATION
  Report Type: Report from Study
  Country: NL (occurrence: NL)
  Receive Date: 20220209
  Receipt Date: 20220209
  Transmission Date: 20220424
  Serious: Yes (Hospitalization)
  Sender: FDA-Public Use
  Company Number: NL-IGSA-BIG0017550

PATIENT
  Age: 78 Year
  Sex: Female

DRUGS (2)
  1. FLEBOGAMMA DIF [Suspect]
     Active Substance: HUMAN IMMUNOGLOBULIN G
     Indication: Secondary immunodeficiency
     Dosage: 35 GRAM, TOTAL
     Route: 042
     Dates: start: 20220106, end: 20220106
  2. FLEBOGAMMA DIF [Suspect]
     Active Substance: HUMAN IMMUNOGLOBULIN G
     Dosage: UNK
     Dates: start: 20220106, end: 20220106

REACTIONS (3)
  - Vomiting [Unknown]
  - Diarrhoea [Unknown]
  - Cystitis [Unknown]

NARRATIVE: CASE EVENT DATE: 20220127
